FAERS Safety Report 6331539-X (Version None)
Quarter: 2009Q3

REPORT INFORMATION
  Report Type: 
  Country: None (occurrence: None)
  Receive Date: 20090827
  Receipt Date: 20090814
  Transmission Date: 20100115
  Serious: Yes (Life-Threatening, Hospitalization)
  Sender: FDA-Public Use
  Company Number: US-ROCHE-606480

PATIENT
  Sex: Female
  Weight: 62.7 kg

DRUGS (4)
  1. PEG-INTERFERON ALFA 2A (RO 25-8310) [Suspect]
     Indication: HEPATITIS C
     Route: 065
     Dates: end: 20070104
  2. RIBAVIRIN [Suspect]
     Indication: HEPATITIS C
     Dosage: RIBAVARIN HELD.
     Route: 065
     Dates: end: 20070104
  3. BLINDED NITAZOXANIDE [Suspect]
     Indication: HEPATITIS C
     Dosage: TEMPORARILY DISCONTINUED ON 04 JAN 2009
     Route: 065
     Dates: start: 20080902, end: 20090106
  4. LISODUR [Concomitant]
     Indication: HYPERTENSION
     Dates: start: 20050101, end: 20090106

REACTIONS (5)
  - ACUTE MYOCARDIAL INFARCTION [None]
  - DEHYDRATION [None]
  - GASTROENTERITIS [None]
  - PNEUMONIA ASPIRATION [None]
  - RENAL FAILURE [None]
